FAERS Safety Report 5693068-6 (Version None)
Quarter: 2008Q2

REPORT INFORMATION
  Report Type: 
  Country: None (occurrence: None)
  Receive Date: 20080402
  Receipt Date: 20080402
  Transmission Date: 20081010
  Serious: Yes (Hospitalization, Other)
  Sender: FDA-Public Use
  Company Number: None

PATIENT
  Age: 47 Year
  Sex: Female
  Weight: 53.978 kg

DRUGS (1)
  1. LAMICTAL [Suspect]
     Indication: ANXIETY
     Dosage: 1XDAILY
     Dates: start: 20071101, end: 20071226

REACTIONS (2)
  - STEVENS-JOHNSON SYNDROME [None]
  - SYSTEMIC LUPUS ERYTHEMATOSUS [None]
